FAERS Safety Report 6057357-8 (Version None)
Quarter: 2009Q1

REPORT INFORMATION
  Report Type: 
  Country: None (occurrence: None)
  Receive Date: 20090129
  Receipt Date: 20090122
  Transmission Date: 20090719
  Serious: Yes (Other)
  Sender: FDA-Public Use
  Company Number: US-ABBOTT-09P-163-0499689-00

PATIENT
  Sex: Male
  Weight: 61.29 kg

DRUGS (2)
  1. HUMIRA [Suspect]
     Indication: RHEUMATOID ARTHRITIS
     Route: 058
     Dates: start: 20050101
  2. METHOTREXATE [Concomitant]
     Indication: RHEUMATOID ARTHRITIS
     Dosage: 8 (2.5MG)=20MG
     Route: 048
     Dates: start: 19930101

REACTIONS (6)
  - DYSGEUSIA [None]
  - HISTOPLASMOSIS [None]
  - INCREASED BRONCHIAL SECRETION [None]
  - NASOPHARYNGITIS [None]
  - PHARYNGEAL INFLAMMATION [None]
  - PHARYNGEAL ULCERATION [None]
